FAERS Safety Report 14842493 (Version 1)
Quarter: 2018Q2

REPORT INFORMATION
  Report Type: Other
  Country: CA (occurrence: CA)
  Receive Date: 20180503
  Receipt Date: 20180503
  Transmission Date: 20180711
  Serious: Yes (Hospitalization, Other)
  Sender: FDA-Public Use
  Company Number: CA-APOTEX-2018AP010867

PATIENT
  Sex: Male

DRUGS (1)
  1. FLUTICASONE. [Suspect]
     Active Substance: FLUTICASONE
     Indication: PRODUCT USED FOR UNKNOWN INDICATION
     Dosage: UNK
     Route: 065

REACTIONS (6)
  - Ill-defined disorder [Unknown]
  - Apparent death [Unknown]
  - Asphyxia [Unknown]
  - Lung disorder [Unknown]
  - Pharyngeal oedema [Unknown]
  - Dyspnoea [Unknown]
